FAERS Safety Report 7898942-8 (Version None)
Quarter: 2011Q4

REPORT INFORMATION
  Report Type: 
  Country: None (occurrence: None)
  Receive Date: 20111107
  Receipt Date: 20111028
  Transmission Date: 20120403
  Serious: Yes (Other)
  Sender: FDA-Public Use
  Company Number: FR-ASTELLAS-2011EU007660

PATIENT
  Sex: Male
  Weight: 58 kg

DRUGS (6)
  1. TIENAM [Concomitant]
     Indication: INFECTION
     Dosage: 1500 MG, UNKNOWN/D
     Route: 042
     Dates: start: 20110905
  2. HEPARIN [Concomitant]
     Indication: THROMBOSIS PROPHYLAXIS
     Dosage: 5500 IU, UNKNOWN/D
     Route: 042
     Dates: start: 20110812
  3. MICAFUNGIN INJECTION [Suspect]
     Indication: ANTIFUNGAL PROPHYLAXIS
     Dosage: 50 MG, UNKNOWN/D
     Route: 042
     Dates: start: 20110901, end: 20110908
  4. TARGOCID [Concomitant]
     Indication: INFECTION
     Dosage: 400 MG, UNKNOWN/D
     Route: 042
     Dates: start: 20110821
  5. AMIKACIN [Concomitant]
     Indication: INFECTION
     Dosage: 1000 MG, UNKNOWN/D
     Route: 042
     Dates: start: 20110904
  6. GRANOCYTE [Concomitant]
     Indication: NEUTROPENIA
     Dosage: 34 IU, UNKNOWN/D
     Route: 058
     Dates: start: 20110820

REACTIONS (2)
  - BRONCHOPULMONARY ASPERGILLOSIS [None]
  - DRUG INEFFECTIVE [None]
